FAERS Safety Report 4754103-2 (Version None)
Quarter: 2005Q3

REPORT INFORMATION
  Report Type: 
  Country: None (occurrence: None)
  Receive Date: 20050824
  Receipt Date: 20050712
  Transmission Date: 20060218
  Serious: No
  Sender: FDA-Public Use
  Company Number: SUS1-2005-00547

PATIENT
  Age: 59 Year
  Sex: Male
  Weight: 123.4 kg

DRUGS (6)
  1. FOSRENOL [Suspect]
     Dosage: SEE IMAGE
     Route: 048
     Dates: start: 20050401
  2. FOSRENOL [Suspect]
     Dosage: SEE IMAGE
     Route: 048
     Dates: start: 20050401
  3. NORVASC/GRC/(AMLODIPINE) [Concomitant]
  4. CARDURA/IRE/ (DOXAZOSIN MESILATE) [Concomitant]
  5. MONOPRIL [Concomitant]
  6. HUMULIN N [Concomitant]

REACTIONS (1)
  - BLOOD GLUCOSE INCREASED [None]
